FAERS Safety Report 4425192-X (Version None)
Quarter: 2004Q3

REPORT INFORMATION
  Report Type: 
  Country: None (occurrence: None)
  Receive Date: 20040812
  Receipt Date: 20040812
  Transmission Date: 20050211
  Serious: Yes (Disabling)
  Sender: FDA-Public Use
  Company Number: None

PATIENT
  Age: 43 Year
  Sex: Female
  Weight: 57.6068 kg

DRUGS (6)
  1. REMICADE [Suspect]
     Indication: ARTHRITIS
     Dosage: 5 MG /KG IV EVERY 8 WKS, 10 MG /KG IV EVERY 8 WKS
     Route: 042
     Dates: start: 20000201, end: 20021001
  2. REMICADE [Suspect]
     Indication: CROHN'S DISEASE
     Dosage: 5 MG /KG IV EVERY 8 WKS, 10 MG /KG IV EVERY 8 WKS
     Route: 042
     Dates: start: 20000201, end: 20021001
  3. REMICADE [Suspect]
     Indication: ARTHRITIS
     Dosage: 5 MG /KG IV EVERY 8 WKS, 10 MG /KG IV EVERY 8 WKS
     Route: 042
     Dates: start: 20021001, end: 20031222
  4. REMICADE [Suspect]
     Indication: CROHN'S DISEASE
     Dosage: 5 MG /KG IV EVERY 8 WKS, 10 MG /KG IV EVERY 8 WKS
     Route: 042
     Dates: start: 20021001, end: 20031222
  5. METHOTREXATE [Concomitant]
  6. NEURONTIN [Concomitant]

REACTIONS (11)
  - ARTHRITIS [None]
  - DEPENDENCE [None]
  - DEPRESSION [None]
  - INCREASED TENDENCY TO BRUISE [None]
  - INJECTION SITE HAEMORRHAGE [None]
  - NEUROPATHY PERIPHERAL [None]
  - PAIN EXACERBATED [None]
  - PHARMACEUTICAL PRODUCT COMPLAINT [None]
  - STRESS SYMPTOMS [None]
  - THROMBOCYTOPENIA [None]
  - VEIN DISORDER [None]
